FAERS Safety Report 10704833 (Version 25)
Quarter: 2023Q4

REPORT INFORMATION
  Report Type: Other
  Country: CA (occurrence: CA)
  Receive Date: 20141127
  Receipt Date: 20231205
  Transmission Date: 20240109
  Serious: Yes (Hospitalization, Other)
  Sender: FDA-Public Use
  Company Number: CA-APOTEX-2014AP005774

PATIENT
  Age: 64 Year
  Sex: Female
  Weight: 68 kg

DRUGS (271)
  1. SULFAMETHOXAZOLE\TRIMETHOPRIM [Suspect]
     Active Substance: SULFAMETHOXAZOLE\TRIMETHOPRIM
     Indication: Product used for unknown indication
     Dosage: 60 MILLIGRAM
     Route: 048
  2. SULFATRIM [Suspect]
     Active Substance: SULFAMETHOXAZOLE\TRIMETHOPRIM
     Indication: Product used for unknown indication
     Dosage: 3 MILLIGRAM, QD
     Route: 048
  3. SULFATRIM [Suspect]
     Active Substance: SULFAMETHOXAZOLE\TRIMETHOPRIM
     Dosage: 1 DOSAGE FORM, QD
     Route: 048
  4. SULFATRIM [Suspect]
     Active Substance: SULFAMETHOXAZOLE\TRIMETHOPRIM
     Dosage: 60 MILLIGRAM
     Route: 048
  5. SULFATRIM [Suspect]
     Active Substance: SULFAMETHOXAZOLE\TRIMETHOPRIM
     Dosage: UNK
     Route: 048
  6. SULFATRIM [Suspect]
     Active Substance: SULFAMETHOXAZOLE\TRIMETHOPRIM
     Dosage: 3 MILLIGRAM, QD
     Route: 065
  7. SULFATRIM [Suspect]
     Active Substance: SULFAMETHOXAZOLE\TRIMETHOPRIM
     Dosage: 60 MILLIGRAM
     Route: 065
  8. SULFATRIM [Suspect]
     Active Substance: SULFAMETHOXAZOLE\TRIMETHOPRIM
     Dosage: 1 MILLIGRAM, QD
     Route: 048
  9. SULFATRIM [Suspect]
     Active Substance: SULFAMETHOXAZOLE\TRIMETHOPRIM
     Dosage: UNK
     Route: 065
  10. BACLOFEN [Suspect]
     Active Substance: BACLOFEN
     Indication: Product used for unknown indication
     Dosage: UNK
     Route: 048
  11. HYDROMORPHONE [Suspect]
     Active Substance: HYDROMORPHONE
     Indication: Product used for unknown indication
     Dosage: UNK
     Route: 065
  12. CALCIUM CARBONATE [Suspect]
     Active Substance: CALCIUM CARBONATE
     Indication: Product used for unknown indication
     Dosage: UNK
     Route: 065
  13. POTASSIUM CHLORIDE [Suspect]
     Active Substance: POTASSIUM CHLORIDE
     Indication: Product used for unknown indication
     Dosage: 600 MILLIGRAM
     Route: 065
  14. POTASSIUM CHLORIDE [Suspect]
     Active Substance: POTASSIUM CHLORIDE
     Indication: Product used for unknown indication
     Dosage: 60 MILLIGRAM, UNK
     Route: 065
  15. POTASSIUM CHLORIDE [Suspect]
     Active Substance: POTASSIUM CHLORIDE
     Dosage: 600 MILLIGRAM
     Route: 065
  16. POTASSIUM CHLORIDE [Suspect]
     Active Substance: POTASSIUM CHLORIDE
     Dosage: UNK
     Route: 065
  17. FUROSEMIDE [Suspect]
     Active Substance: FUROSEMIDE
     Indication: Product used for unknown indication
     Dosage: UNK
     Route: 065
  18. ZOPICLONE [Suspect]
     Active Substance: ZOPICLONE
     Indication: Product used for unknown indication
     Dosage: UNK
     Route: 048
  19. ZOPICLONE [Suspect]
     Active Substance: ZOPICLONE
     Dosage: UNK
     Route: 065
  20. CALCIUM CARBONATE [Suspect]
     Active Substance: CALCIUM CARBONATE
     Indication: Product used for unknown indication
     Dosage: UNK
     Route: 065
  21. ALENDRONATE SODIUM [Suspect]
     Active Substance: ALENDRONATE SODIUM
     Indication: Product used for unknown indication
     Dosage: UNK
     Route: 065
  22. ALENDRONATE [Suspect]
     Active Substance: ALENDRONATE SODIUM
     Indication: Product used for unknown indication
     Dosage: UNK
     Route: 048
  23. ALENDRONATE [Suspect]
     Active Substance: ALENDRONATE SODIUM
     Dosage: UNK
     Route: 002
  24. NORTRIPTYLINE [Suspect]
     Active Substance: NORTRIPTYLINE
     Indication: Product used for unknown indication
     Dosage: UNK
     Route: 065
  25. MYCOPHENOLIC ACID [Suspect]
     Active Substance: MYCOPHENOLIC ACID
     Indication: Product used for unknown indication
     Dosage: UNK
     Route: 065
  26. NORTRIPTYLINE [Suspect]
     Active Substance: NORTRIPTYLINE
     Indication: Product used for unknown indication
     Dosage: UNK
     Route: 048
  27. WARFARIN SODIUM [Suspect]
     Active Substance: WARFARIN SODIUM
     Indication: Product used for unknown indication
     Dosage: UNK
     Route: 065
  28. TIZANIDINE HYDROCHLORIDE [Suspect]
     Active Substance: TIZANIDINE HYDROCHLORIDE
     Indication: Product used for unknown indication
     Dosage: UNK
     Route: 048
  29. PREDNISONE [Suspect]
     Active Substance: PREDNISONE
     Indication: Product used for unknown indication
     Dosage: UNK
     Route: 065
  30. TIZANIDINE [Suspect]
     Active Substance: TIZANIDINE
     Indication: Product used for unknown indication
     Dosage: UNK
     Route: 048
  31. TIZANIDINE [Suspect]
     Active Substance: TIZANIDINE
     Dosage: UNK
     Route: 065
  32. MOMETASONE [Suspect]
     Active Substance: MOMETASONE
     Indication: Product used for unknown indication
     Dosage: UNK
     Route: 065
  33. NAPROXEN SODIUM [Suspect]
     Active Substance: NAPROXEN\NAPROXEN SODIUM
     Indication: Product used for unknown indication
     Dosage: UNK
     Route: 065
  34. BACLOFEN [Suspect]
     Active Substance: BACLOFEN
     Indication: Product used for unknown indication
     Dosage: UNK
     Route: 065
  35. BACLOFEN [Suspect]
     Active Substance: BACLOFEN
     Dosage: UNK
     Route: 048
  36. CALCIUM CARBONATE [Suspect]
     Active Substance: CALCIUM CARBONATE
     Indication: Product used for unknown indication
     Dosage: UNK
     Route: 065
  37. FOLIC ACID [Suspect]
     Active Substance: FOLIC ACID
     Indication: Product used for unknown indication
     Dosage: UNK
     Route: 048
  38. FOLIC ACID [Suspect]
     Active Substance: FOLIC ACID
     Dosage: UNK
     Route: 065
  39. GLICLAZIDE [Suspect]
     Active Substance: GLICLAZIDE
     Indication: Product used for unknown indication
     Dosage: 10 MILLIGRAM
     Route: 065
  40. DULOXETINE [Suspect]
     Active Substance: DULOXETINE
     Indication: Product used for unknown indication
     Dosage: UNK
     Route: 048
  41. DULOXETINE [Suspect]
     Active Substance: DULOXETINE
     Dosage: 3 MILLIGRAM, QD
     Route: 048
  42. DULOXETINE [Suspect]
     Active Substance: DULOXETINE
     Dosage: 1 DOSAGE FORM, QD
     Route: 048
  43. DULOXETINE [Suspect]
     Active Substance: DULOXETINE
     Dosage: 1 MILLIGRAM, QD
     Route: 048
  44. DULOXETINE [Suspect]
     Active Substance: DULOXETINE
     Dosage: 1 MILLIGRAM
     Route: 065
  45. DULOXETINE [Suspect]
     Active Substance: DULOXETINE
     Dosage: 1 DOSAGE FORM, QD
     Route: 065
  46. LORATADINE [Suspect]
     Active Substance: LORATADINE
     Indication: Product used for unknown indication
     Dosage: 10 MILLIGRAM
     Route: 048
  47. LORATADINE [Suspect]
     Active Substance: LORATADINE
     Dosage: UNK
     Route: 048
  48. LORATADINE [Suspect]
     Active Substance: LORATADINE
     Dosage: UNK
     Route: 065
  49. MYCOPHENOLATE MOFETIL [Suspect]
     Active Substance: MYCOPHENOLATE MOFETIL
     Indication: Product used for unknown indication
     Dosage: UNK
     Route: 065
  50. TRIMIPRAMINE [Suspect]
     Active Substance: TRIMIPRAMINE
     Indication: Product used for unknown indication
     Dosage: UNK
     Route: 065
  51. ALENDRONATE SODIUM\CHOLECALCIFEROL [Suspect]
     Active Substance: ALENDRONATE SODIUM\CHOLECALCIFEROL
     Indication: Product used for unknown indication
     Dosage: UNK
     Route: 065
  52. DOCUSATE SODIUM [Suspect]
     Active Substance: DOCUSATE SODIUM
     Indication: Product used for unknown indication
     Dosage: UNK
     Route: 065
  53. DOCUSATE SODIUM [Suspect]
     Active Substance: DOCUSATE SODIUM
     Indication: Pain
     Dosage: 3 MILLILITER, QD
     Route: 065
  54. LORATADINE [Suspect]
     Active Substance: LORATADINE
     Indication: Product used for unknown indication
     Dosage: 10 MG, UNK
     Route: 065
  55. HYDROCHLOROTHIAZIDE [Suspect]
     Active Substance: HYDROCHLOROTHIAZIDE
     Indication: Product used for unknown indication
     Dosage: UNK
     Route: 048
  56. CLARITHROMYCIN [Suspect]
     Active Substance: CLARITHROMYCIN
     Indication: Product used for unknown indication
     Dosage: 10 MILLIGRAM
     Route: 065
  57. RANITIDINE [Suspect]
     Active Substance: RANITIDINE
     Indication: Product used for unknown indication
     Dosage: UNK
     Route: 065
  58. SULFAMETHOXAZOLE\TRIMETHOPRIM [Suspect]
     Active Substance: SULFAMETHOXAZOLE\TRIMETHOPRIM
     Indication: Product used for unknown indication
     Dosage: UNK
     Route: 048
  59. ASPIRIN [Suspect]
     Active Substance: ASPIRIN
     Indication: Product used for unknown indication
     Dosage: UNK
     Route: 065
  60. TRIMETHOPRIM [Suspect]
     Active Substance: TRIMETHOPRIM
     Indication: Product used for unknown indication
     Dosage: UNK
     Route: 065
  61. POTASSIUM CHLORIDE [Suspect]
     Active Substance: POTASSIUM CHLORIDE
     Indication: Product used for unknown indication
     Dosage: 600 MILLIGRAM
     Route: 042
  62. POTASSIUM CHLORIDE [Suspect]
     Active Substance: POTASSIUM CHLORIDE
     Dosage: 600 MILLIEQUIVALENT
     Route: 042
  63. POTASSIUM CHLORIDE [Suspect]
     Active Substance: POTASSIUM CHLORIDE
     Dosage: UNK
     Route: 042
  64. POTASSIUM CHLORIDE [Suspect]
     Active Substance: POTASSIUM CHLORIDE
     Dosage: 600 MILLIGRAM
     Route: 065
  65. POTASSIUM CHLORIDE [Suspect]
     Active Substance: POTASSIUM CHLORIDE
     Dosage: 60 MILLIGRAM
     Route: 065
  66. POTASSIUM CHLORIDE [Suspect]
     Active Substance: POTASSIUM CHLORIDE
     Dosage: 600 MILLIEQUIVALENT
     Route: 065
  67. ACIDOPHILUS [Suspect]
     Active Substance: LACTOBACILLUS ACIDOPHILUS
     Indication: Product used for unknown indication
     Dosage: UNK
     Route: 048
  68. LORATADINE [Suspect]
     Active Substance: LORATADINE
     Indication: Product used for unknown indication
     Dosage: UNK
     Route: 042
  69. LORATADINE [Suspect]
     Active Substance: LORATADINE
     Dosage: 600 MILLIGRAM
     Route: 042
  70. LORATADINE [Suspect]
     Active Substance: LORATADINE
     Dosage: 10 MILLIGRAM
     Route: 042
  71. THYMOCYTE IMMUNE GLOBULIN NOS [Suspect]
     Active Substance: THYMOCYTE IMMUNE GLOBULIN NOS
     Indication: Product used for unknown indication
     Dosage: UNK
     Route: 042
  72. SULFATRIM [Suspect]
     Active Substance: SULFAMETHOXAZOLE\TRIMETHOPRIM
     Indication: Product used for unknown indication
     Dosage: UNK
     Route: 042
  73. ATIVAN [Suspect]
     Active Substance: LORAZEPAM
     Indication: Product used for unknown indication
     Dosage: UNK
     Route: 065
  74. CELLCEPT [Suspect]
     Active Substance: MYCOPHENOLATE MOFETIL
     Indication: Product used for unknown indication
     Dosage: UNK
     Route: 065
  75. CYMBALTA [Suspect]
     Active Substance: DULOXETINE HYDROCHLORIDE
     Indication: Pain
     Dosage: 3 MILLIGRAM, QD
     Route: 048
  76. CYMBALTA [Suspect]
     Active Substance: DULOXETINE HYDROCHLORIDE
     Indication: Product used for unknown indication
     Dosage: 3 MILLIGRAM, QD
     Route: 048
  77. CYMBALTA [Suspect]
     Active Substance: DULOXETINE HYDROCHLORIDE
     Dosage: UNK, QD
     Route: 048
  78. CYMBALTA [Suspect]
     Active Substance: DULOXETINE HYDROCHLORIDE
     Dosage: 1 DOSAGE FORM, QD
     Route: 048
  79. CYMBALTA [Suspect]
     Active Substance: DULOXETINE HYDROCHLORIDE
     Dosage: 1 DOSAGE FORM, QD
     Route: 048
  80. CYMBALTA [Suspect]
     Active Substance: DULOXETINE HYDROCHLORIDE
     Dosage: UNK UNK, QD
     Route: 048
  81. CYMBALTA [Suspect]
     Active Substance: DULOXETINE HYDROCHLORIDE
     Dosage: 3 MILLIGRAM, QD
     Route: 065
  82. CYMBALTA [Suspect]
     Active Substance: DULOXETINE HYDROCHLORIDE
     Dosage: 1 MILLIGRAM, QD
     Route: 048
  83. CYMBALTA [Suspect]
     Active Substance: DULOXETINE HYDROCHLORIDE
     Dosage: 1 DOSAGE FORM, QD
     Route: 065
  84. CYMBALTA [Suspect]
     Active Substance: DULOXETINE HYDROCHLORIDE
     Dosage: UNK
     Route: 048
  85. IMODIUM [Suspect]
     Active Substance: LOPERAMIDE HYDROCHLORIDE
     Indication: Product used for unknown indication
     Dosage: UNK
     Route: 042
  86. IMODIUM [Suspect]
     Active Substance: LOPERAMIDE HYDROCHLORIDE
     Dosage: UNK
     Route: 065
  87. B100 [Suspect]
     Active Substance: CITRIC ACID MONOHYDRATE\SODIUM CHLORITE
     Indication: Product used for unknown indication
     Dosage: UNK
     Route: 065
  88. LYRICA [Suspect]
     Active Substance: PREGABALIN
     Indication: Product used for unknown indication
     Dosage: UNK
     Route: 048
  89. MELATONIN [Suspect]
     Active Substance: MELATONIN
     Indication: Product used for unknown indication
     Dosage: 5 MILLIGRAM
     Route: 065
  90. NASONEX [Suspect]
     Active Substance: MOMETASONE FUROATE
     Indication: Product used for unknown indication
     Dosage: UNK
     Route: 065
  91. HYDROCHLOROTHIAZIDE [Suspect]
     Active Substance: HYDROCHLOROTHIAZIDE
     Indication: Product used for unknown indication
     Dosage: UNK
     Route: 048
  92. HYDROCHLOROTHIAZIDE [Suspect]
     Active Substance: HYDROCHLOROTHIAZIDE
     Dosage: UNK
     Route: 065
  93. FISH OIL [Suspect]
     Active Substance: FISH OIL
     Indication: Product used for unknown indication
     Dosage: UNK
     Route: 048
  94. FISH OIL [Suspect]
     Active Substance: FISH OIL
     Dosage: UNK
     Route: 065
  95. SENNOSIDES A AND B [Suspect]
     Active Substance: SENNOSIDES A AND B
     Indication: Product used for unknown indication
     Dosage: UNK
     Route: 065
  96. SENOKOT [Suspect]
     Active Substance: SENNOSIDES
     Indication: Product used for unknown indication
     Dosage: UNK
     Route: 065
  97. VITAMIN B12 [Suspect]
     Active Substance: CYANOCOBALAMIN
     Indication: Product used for unknown indication
     Dosage: UNK
     Route: 065
  98. VITAMIN C [Suspect]
     Active Substance: ASCORBIC ACID
     Indication: Product used for unknown indication
     Dosage: UNK
     Route: 065
  99. VITAMIN D [Suspect]
     Active Substance: VITAMIN D NOS
     Indication: Product used for unknown indication
     Dosage: UNK
     Route: 065
  100. ZANTAC [Suspect]
     Active Substance: RANITIDINE HYDROCHLORIDE
     Indication: Product used for unknown indication
     Dosage: UNK
     Route: 048
  101. VITAMIN B12 [Suspect]
     Active Substance: CYANOCOBALAMIN
     Indication: Product used for unknown indication
     Dosage: UNK
     Route: 065
  102. NIACINAMIDE\PYRIDOXINE HYDROCHLORIDE\RIBOFLAVIN\THIAMINE HYDROCHLORIDE [Suspect]
     Active Substance: NIACINAMIDE\PYRIDOXINE HYDROCHLORIDE\RIBOFLAVIN\THIAMINE HYDROCHLORIDE
     Indication: Product used for unknown indication
     Dosage: UNK, UNKNOWN
     Route: 065
  103. DOCONEXENT\ICOSAPENT [Suspect]
     Active Substance: DOCONEXENT\ICOSAPENT
     Indication: Product used for unknown indication
     Dosage: 1000 MG, UNK
     Route: 065
  104. BIFIDOBACTERIUM ANIMALIS LACTIS [Suspect]
     Active Substance: BIFIDOBACTERIUM ANIMALIS LACTIS
     Indication: Product used for unknown indication
     Dosage: UNK
     Route: 065
  105. VITAMINS [Suspect]
     Active Substance: VITAMINS
     Indication: Product used for unknown indication
     Route: 065
  106. NIACINAMIDE\PYRIDOXINE HYDROCHLORIDE\RIBOFLAVIN\THIAMINE HYDROCHLORIDE [Suspect]
     Active Substance: NIACINAMIDE\PYRIDOXINE HYDROCHLORIDE\RIBOFLAVIN\THIAMINE HYDROCHLORIDE
     Indication: Product used for unknown indication
     Dosage: UNK
     Route: 065
  107. SENNA LEAF [Suspect]
     Active Substance: SENNA LEAF
     Indication: Product used for unknown indication
     Route: 048
  108. DEXPANTHENOL [Suspect]
     Active Substance: DEXPANTHENOL
     Indication: Product used for unknown indication
     Dosage: UNK
     Route: 065
  109. ERGOCALCIFEROL [Suspect]
     Active Substance: ERGOCALCIFEROL
     Indication: Product used for unknown indication
     Dosage: UNK
     Route: 065
  110. PYRIDOXINE HYDROCHLORIDE [Suspect]
     Active Substance: PYRIDOXINE HYDROCHLORIDE
     Indication: Product used for unknown indication
     Dosage: UNK
     Route: 065
  111. RIBOFLAVIN [Suspect]
     Active Substance: RIBOFLAVIN
     Indication: Product used for unknown indication
     Dosage: UNK
     Route: 065
  112. THIAMINE HYDROCHLORIDE [Suspect]
     Active Substance: THIAMINE HYDROCHLORIDE
     Indication: Product used for unknown indication
     Dosage: UNK
     Route: 048
  113. RETINOL [Suspect]
     Active Substance: RETINOL
     Indication: Product used for unknown indication
     Dosage: 3 MG, QD
     Route: 048
  114. RETINOL [Suspect]
     Active Substance: RETINOL
     Dosage: 1 DF, QD
     Route: 048
  115. RETINOL [Suspect]
     Active Substance: RETINOL
     Dosage: 600 MEQ, UNK
     Route: 065
  116. RETINOL [Suspect]
     Active Substance: RETINOL
     Dosage: UNK
     Route: 048
  117. RETINOL [Suspect]
     Active Substance: RETINOL
     Dosage: 1 DF, QD
     Route: 065
  118. RETINOL [Suspect]
     Active Substance: RETINOL
     Dosage: 3 MG, QD
     Route: 065
  119. RETINOL [Suspect]
     Active Substance: RETINOL
     Dosage: UNK, 600 MU
     Route: 065
  120. RETINOL [Suspect]
     Active Substance: RETINOL
     Dosage: 600 MILLIGRAM
     Route: 065
  121. RETINOL [Suspect]
     Active Substance: RETINOL
     Dosage: UNK
     Route: 065
  122. NICOTINAMIDE [Suspect]
     Active Substance: NIACINAMIDE
     Indication: Product used for unknown indication
     Route: 065
  123. CALCIUM [Suspect]
     Active Substance: CALCIUM
     Indication: Product used for unknown indication
     Dosage: UNK
     Route: 065
  124. CYANOCOBALAMIN [Suspect]
     Active Substance: CYANOCOBALAMIN
     Indication: Product used for unknown indication
     Dosage: UNK
     Route: 065
  125. SENNA LEAF [Suspect]
     Active Substance: SENNA LEAF
     Indication: Product used for unknown indication
     Dosage: UNK
     Route: 065
  126. LOPERAMIDE [Suspect]
     Active Substance: LOPERAMIDE
     Indication: Product used for unknown indication
     Dosage: UNK MILLIGRAM
     Route: 042
  127. CLARITIN [Suspect]
     Active Substance: LORATADINE
     Indication: Product used for unknown indication
     Dosage: 10 MG, UNK
     Route: 065
  128. CLARITIN [Suspect]
     Active Substance: LORATADINE
     Dosage: 600 MG, UNK
     Route: 042
  129. BIFIDOBACTERIUM ANIMALIS LACTIS [Suspect]
     Active Substance: BIFIDOBACTERIUM ANIMALIS LACTIS
     Indication: Product used for unknown indication
     Dosage: UNK
     Route: 065
  130. FISH OIL [Suspect]
     Active Substance: FISH OIL
     Indication: Product used for unknown indication
     Dosage: UNK
     Route: 065
  131. HUMAN IMMUNOGLOBULIN G [Suspect]
     Active Substance: HUMAN IMMUNOGLOBULIN G
     Indication: Product used for unknown indication
     Dosage: UNK
     Route: 042
  132. HORSE CHESTNUT [Suspect]
     Active Substance: HORSE CHESTNUT
     Indication: Product used for unknown indication
     Dosage: UNK
     Route: 065
  133. FOSAMAX [Suspect]
     Active Substance: ALENDRONATE SODIUM
     Indication: Product used for unknown indication
     Dosage: UNK
     Route: 065
  134. FISH OIL\TOCOPHEROL [Suspect]
     Active Substance: FISH OIL\TOCOPHEROL
     Indication: Product used for unknown indication
     Dosage: UNK
     Route: 065
  135. FISH OIL\TOCOPHEROL [Suspect]
     Active Substance: FISH OIL\TOCOPHEROL
     Dosage: UNK
     Route: 048
  136. BACLOFEN [Suspect]
     Active Substance: BACLOFEN
     Indication: Product used for unknown indication
     Dosage: UNK
     Route: 065
  137. ASCORBIC ACID [Suspect]
     Active Substance: ASCORBIC ACID
     Indication: Product used for unknown indication
     Dosage: UNK
     Route: 065
  138. CALCIUM CARBONATE [Suspect]
     Active Substance: CALCIUM CARBONATE
     Indication: Product used for unknown indication
     Dosage: UNK
     Route: 065
  139. FISH OIL [Suspect]
     Active Substance: FISH OIL
     Indication: Product used for unknown indication
     Dosage: UNK
     Route: 048
  140. FISH OIL [Suspect]
     Active Substance: FISH OIL
     Dosage: UNK
     Route: 065
  141. SULFATRIM [Suspect]
     Active Substance: SULFAMETHOXAZOLE\TRIMETHOPRIM
     Indication: Product used for unknown indication
     Dosage: UNK
     Route: 042
  142. BIOTIN [Suspect]
     Active Substance: BIOTIN
     Indication: Product used for unknown indication
     Dosage: UNK
     Route: 065
  143. COD LIVER OIL [Suspect]
     Active Substance: COD LIVER OIL
     Indication: Product used for unknown indication
     Dosage: UNK
     Route: 048
  144. INSULIN NOS [Suspect]
     Active Substance: INSULIN NOS
     Indication: Product used for unknown indication
     Dosage: UNK
     Route: 065
  145. LACTOBACILLUS CASEI [Suspect]
     Active Substance: LACTOBACILLUS CASEI
     Indication: Product used for unknown indication
     Dosage: UNK
     Route: 065
  146. OMEGA-3-ACID ETHYL ESTERS [Suspect]
     Active Substance: OMEGA-3-ACID ETHYL ESTERS
     Indication: Product used for unknown indication
     Dosage: UNK
     Route: 065
  147. VITAMIN D3 [Suspect]
     Active Substance: CHOLECALCIFEROL
     Indication: Product used for unknown indication
     Dosage: 400 IU, UNK
     Route: 065
  148. TRIAMTERENE [Suspect]
     Active Substance: TRIAMTERENE
     Indication: Product used for unknown indication
     Dosage: UNK
     Route: 065
  149. SULFADIAZINE\TRIMETHOPRIM [Suspect]
     Active Substance: SULFADIAZINE\TRIMETHOPRIM
     Indication: Product used for unknown indication
     Dosage: 60 MILLIGRAM
     Route: 048
  150. SULFADIAZINE\TRIMETHOPRIM [Suspect]
     Active Substance: SULFADIAZINE\TRIMETHOPRIM
     Dosage: 1 DOSAGE FORM, QD
     Route: 048
  151. SULFADIAZINE\TRIMETHOPRIM [Suspect]
     Active Substance: SULFADIAZINE\TRIMETHOPRIM
     Dosage: 3 MILLIGRAM, QD
     Route: 048
  152. SULFADIAZINE\TRIMETHOPRIM [Suspect]
     Active Substance: SULFADIAZINE\TRIMETHOPRIM
     Dosage: UNK
     Route: 048
  153. SULFADIAZINE\TRIMETHOPRIM [Suspect]
     Active Substance: SULFADIAZINE\TRIMETHOPRIM
     Dosage: 3 DOSAGE FORM
     Route: 048
  154. SULFADIAZINE\TRIMETHOPRIM [Suspect]
     Active Substance: SULFADIAZINE\TRIMETHOPRIM
     Dosage: UNK
     Route: 065
  155. SULFADIAZINE\TRIMETHOPRIM [Suspect]
     Active Substance: SULFADIAZINE\TRIMETHOPRIM
     Dosage: 1 MILLIGRAM, QD
     Route: 048
  156. DOCONEXENT [Suspect]
     Active Substance: DOCONEXENT
     Indication: Product used for unknown indication
     Dosage: UNK
     Route: 065
  157. SULFAMETHOXAZOLE [Suspect]
     Active Substance: SULFAMETHOXAZOLE
     Indication: Product used for unknown indication
     Dosage: UNK
     Route: 042
  158. BIFIDOBACTERIUM LONGUM\LACTOBACILLUS ACIDOPHILUS [Suspect]
     Active Substance: BIFIDOBACTERIUM LONGUM\LACTOBACILLUS ACIDOPHILUS
     Indication: Product used for unknown indication
     Dosage: UNK
     Route: 048
  159. LAPINE T-LYMPHOCYTE IMMUNE GLOBULIN [Suspect]
     Active Substance: LAPINE T-LYMPHOCYTE IMMUNE GLOBULIN
     Indication: Product used for unknown indication
     Dosage: UNK
     Route: 065
  160. AMINOBENZOIC ACID [Suspect]
     Active Substance: AMINOBENZOIC ACID
     Indication: Product used for unknown indication
     Dosage: UNK
     Route: 065
  161. EQUINE THYMOCYTE IMMUNE GLOBULIN [Suspect]
     Active Substance: EQUINE THYMOCYTE IMMUNE GLOBULIN
     Indication: Product used for unknown indication
     Dosage: UNK
     Route: 042
  162. BIFIDOBACTERIUM BIFIDUM [Suspect]
     Active Substance: BIFIDOBACTERIUM BIFIDUM
     Indication: Product used for unknown indication
     Dosage: UNK
     Route: 065
  163. CHOLINE BITARTRATE [Suspect]
     Active Substance: CHOLINE BITARTRATE
     Indication: Product used for unknown indication
     Dosage: UNK
     Route: 065
  164. GAMASTAN [Suspect]
     Active Substance: HUMAN IMMUNOGLOBULIN G
     Indication: Product used for unknown indication
     Dosage: UNK
     Route: 042
  165. INOSITOL [Suspect]
     Active Substance: INOSITOL
     Indication: Product used for unknown indication
     Dosage: UNK
     Route: 065
  166. LACTOBACILLUS ACIDOPHILUS [Suspect]
     Active Substance: LACTOBACILLUS ACIDOPHILUS
     Indication: Product used for unknown indication
     Dosage: UNK
     Route: 048
  167. LECITHIN [Suspect]
     Active Substance: LECITHIN
     Indication: Product used for unknown indication
     Dosage: UNK
     Route: 065
  168. NASONEX [Suspect]
     Active Substance: MOMETASONE FUROATE
     Indication: Product used for unknown indication
     Dosage: UNK
     Route: 042
  169. SENNOSIDES A AND B [Suspect]
     Active Substance: SENNOSIDES A AND B
     Indication: Product used for unknown indication
     Dosage: UNK
     Route: 065
  170. DOCUSATE SODIUM\SENNOSIDES A AND B [Suspect]
     Active Substance: DOCUSATE SODIUM\SENNOSIDES A AND B
     Indication: Product used for unknown indication
     Dosage: UNK
     Route: 065
  171. .ALPHA.-TOCOPHEROL, D- [Suspect]
     Active Substance: .ALPHA.-TOCOPHEROL, D-
     Indication: Product used for unknown indication
     Dosage: UNK
     Route: 048
  172. GUAIFENESIN\SULFAMETHOXAZOLE\TRIMETHOPRIM [Suspect]
     Active Substance: GUAIFENESIN\SULFAMETHOXAZOLE\TRIMETHOPRIM
     Indication: Product used for unknown indication
     Dosage: UNK
     Route: 065
  173. BIFIDOBACTERIUM LONGUM [Suspect]
     Active Substance: BIFIDOBACTERIUM LONGUM
     Indication: Product used for unknown indication
     Dosage: UNK
     Route: 065
  174. CHOLECALCIFEROL [Suspect]
     Active Substance: CHOLECALCIFEROL
     Indication: Product used for unknown indication
     Dosage: 400 INTERNATIONAL UNIT
     Route: 065
  175. CHOLECALCIFEROL [Suspect]
     Active Substance: CHOLECALCIFEROL
     Dosage: 1000 INTERNATIONAL UNIT
     Route: 065
  176. CREATINE [Suspect]
     Active Substance: CREATINE
     Indication: Product used for unknown indication
     Dosage: UNK
     Route: 065
  177. FRUCTOSE [Suspect]
     Active Substance: FRUCTOSE
     Indication: Product used for unknown indication
     Dosage: UNK
     Route: 065
  178. .ALPHA.-TOCOPHEROL ACETATE, D-\EVENING PRIMROSE OIL\FISH OIL [Suspect]
     Active Substance: .ALPHA.-TOCOPHEROL ACETATE, D-\EVENING PRIMROSE OIL\FISH OIL
     Indication: Product used for unknown indication
     Dosage: UNK
     Route: 065
  179. VITAMINS [Suspect]
     Active Substance: VITAMINS
     Indication: Product used for unknown indication
     Dosage: UNK
     Route: 065
  180. MYCOPHENOLATE MOFETIL HYDROCHLORIDE [Suspect]
     Active Substance: MYCOPHENOLATE MOFETIL HYDROCHLORIDE
     Indication: Product used for unknown indication
     Dosage: UNK
     Route: 065
  181. BIFIDOBACTERIUM BIFIDUM\LYSOZYME [Suspect]
     Active Substance: BIFIDOBACTERIUM BIFIDUM\LYSOZYME
     Indication: Product used for unknown indication
     Dosage: UNK
     Route: 065
  182. INULIN [Suspect]
     Active Substance: INULIN
     Indication: Product used for unknown indication
     Dosage: UNK
     Route: 065
  183. VITAMIN B1 [Suspect]
     Active Substance: THIAMINE HYDROCHLORIDE
     Indication: Product used for unknown indication
     Dosage: UNK
     Route: 065
  184. HORSE CHESTNUT [Suspect]
     Active Substance: HORSE CHESTNUT
     Indication: Product used for unknown indication
     Dosage: UNK
     Route: 065
  185. LORATADINE\PSEUDOEPHEDRINE SULFATE [Suspect]
     Active Substance: LORATADINE\PSEUDOEPHEDRINE SULFATE
     Indication: Product used for unknown indication
     Dosage: 10 MG, UNK
     Route: 065
  186. VITAMIN B12 [Suspect]
     Active Substance: CYANOCOBALAMIN
     Indication: Product used for unknown indication
     Dosage: UNK
     Route: 065
  187. SULFADIAZINE\TRIMETHOPRIM [Suspect]
     Active Substance: SULFADIAZINE\TRIMETHOPRIM
     Indication: Product used for unknown indication
     Dosage: UNK
     Route: 042
  188. HYDROXOCOBALAMIN [Suspect]
     Active Substance: HYDROXOCOBALAMIN
     Indication: Product used for unknown indication
     Dosage: UNK
     Route: 065
  189. VACCINIA IMMUNE GLOBULIN HUMAN [Suspect]
     Active Substance: VACCINIA IMMUNE GLOBULIN HUMAN
     Indication: Product used for unknown indication
     Dosage: UNK
     Route: 042
  190. VITAMIN B1 [Suspect]
     Active Substance: THIAMINE HYDROCHLORIDE
     Indication: Product used for unknown indication
     Dosage: UNK
     Route: 065
  191. CYANOCOBALAMIN [Suspect]
     Active Substance: CYANOCOBALAMIN
     Indication: Product used for unknown indication
     Dosage: UNK
     Route: 065
  192. LACTOBACILLUS REUTERI [Suspect]
     Active Substance: LACTOBACILLUS REUTERI
     Indication: Product used for unknown indication
     Dosage: UNK
     Route: 065
  193. LACTOBACILLUS REUTERI [Suspect]
     Active Substance: LACTOBACILLUS REUTERI
     Dosage: 3 MILLILITER
     Route: 065
  194. DOCUSATE SODIUM\SENNA LEAF [Suspect]
     Active Substance: DOCUSATE SODIUM\SENNA LEAF
     Indication: Product used for unknown indication
     Dosage: UNK
     Route: 065
  195. CREATININE [Suspect]
     Active Substance: CREATININE
     Indication: Product used for unknown indication
     Dosage: UNK
     Route: 065
  196. SODIUM CHLORIDE [Suspect]
     Active Substance: SODIUM CHLORIDE
     Indication: Product used for unknown indication
     Dosage: UNK
     Route: 065
  197. MAGNESIUM CARBONATE [Suspect]
     Active Substance: MAGNESIUM CARBONATE
     Indication: Product used for unknown indication
     Dosage: UNK
     Route: 065
  198. CALCIUM GLUCONATE [Suspect]
     Active Substance: CALCIUM GLUCONATE
     Indication: Product used for unknown indication
     Dosage: UNK
     Route: 065
  199. DOCUSATE CALCIUM [Suspect]
     Active Substance: DOCUSATE CALCIUM
     Indication: Product used for unknown indication
     Dosage: UNK
     Route: 065
  200. CALCIUM PANTOTHENATE [Suspect]
     Active Substance: CALCIUM PANTOTHENATE
     Indication: Product used for unknown indication
     Dosage: UNK
     Route: 065
  201. SENNOSIDES A AND B [Suspect]
     Active Substance: SENNOSIDES A AND B
     Indication: Product used for unknown indication
     Dosage: UNK
     Route: 065
  202. LACTOBACILLUS CASEI [Suspect]
     Active Substance: LACTOBACILLUS CASEI
     Indication: Product used for unknown indication
     Dosage: UNK
     Route: 065
  203. DOCUSATE SODIUM\SENNOSIDES A AND B [Suspect]
     Active Substance: DOCUSATE SODIUM\SENNOSIDES A AND B
     Indication: Product used for unknown indication
     Dosage: UNK
     Route: 065
  204. GAMMAGARD [Suspect]
     Active Substance: HUMAN IMMUNOGLOBULIN G
     Indication: Product used for unknown indication
     Dosage: UNK
     Route: 065
  205. GAMMAGARD [Suspect]
     Active Substance: HUMAN IMMUNOGLOBULIN G
     Dosage: UNK
     Route: 042
  206. TETANUS IMMUNE GLOBULIN (HUMAN) [Suspect]
     Active Substance: HUMAN CLOSTRIDIUM TETANI TOXOID IMMUNE GLOBULIN
     Indication: Product used for unknown indication
     Dosage: UNK
     Route: 065
  207. SULFADIAZINE [Suspect]
     Active Substance: SULFADIAZINE
     Indication: Product used for unknown indication
     Dosage: 1 DOSAGE FORM, QD
     Route: 048
  208. SULFAMETHOXAZOLE\TRIMETHOPRIM [Suspect]
     Active Substance: SULFAMETHOXAZOLE\TRIMETHOPRIM
     Dosage: 60 MILLIGRAM
     Route: 048
  209. SULFADIAZINE [Suspect]
     Active Substance: SULFADIAZINE
     Dosage: 3 MILLIGRAM, QD
     Route: 048
  210. SULFAMETHOXAZOLE\TRIMETHOPRIM [Suspect]
     Active Substance: SULFAMETHOXAZOLE\TRIMETHOPRIM
     Dosage: UNK
     Route: 048
  211. SULFADIAZINE [Suspect]
     Active Substance: SULFADIAZINE
     Indication: Product used for unknown indication
     Dosage: UNK
     Route: 042
  212. CLORPRENALINE HYDROCHLORIDE [Suspect]
     Active Substance: CLORPRENALINE HYDROCHLORIDE
     Indication: Product used for unknown indication
     Dosage: UNK
     Route: 065
  213. BROMHEXINE\SULFAMETHOXAZOLE\TRIMETHOPRIM [Suspect]
     Active Substance: BROMHEXINE\SULFAMETHOXAZOLE\TRIMETHOPRIM
     Indication: Product used for unknown indication
     Dosage: UNK
     Route: 065
  214. POTASSIUM CHLORIDE\SODIUM CHLORIDE [Suspect]
     Active Substance: POTASSIUM CHLORIDE\SODIUM CHLORIDE
     Indication: Product used for unknown indication
     Dosage: UNK
     Route: 042
  215. SULFADIAZINE\TETROXOPRIM [Suspect]
     Active Substance: SULFADIAZINE\TETROXOPRIM
     Indication: Product used for unknown indication
     Dosage: 60 MILLIGRAM
     Route: 048
  216. SULFADIAZINE\TETROXOPRIM [Suspect]
     Active Substance: SULFADIAZINE\TETROXOPRIM
     Dosage: 3 MILLIGRAM, QD
     Route: 048
  217. SULFADIAZINE\TETROXOPRIM [Suspect]
     Active Substance: SULFADIAZINE\TETROXOPRIM
     Dosage: 1 DOSAGE FORM, QD
     Route: 048
  218. SULFADIAZINE\TETROXOPRIM [Suspect]
     Active Substance: SULFADIAZINE\TETROXOPRIM
     Indication: Product used for unknown indication
     Dosage: UNK
     Route: 042
  219. CREATINE [Suspect]
     Active Substance: CREATINE
     Indication: Product used for unknown indication
     Dosage: UNK
     Route: 065
  220. ALENDRONIC ACID [Suspect]
     Active Substance: ALENDRONIC ACID
     Indication: Product used for unknown indication
     Dosage: UNK
     Route: 065
  221. DULOXETINE HYDROCHLORIDE [Suspect]
     Active Substance: DULOXETINE HYDROCHLORIDE
     Indication: Product used for unknown indication
     Dosage: 3 MILLILITER, QD
     Route: 048
  222. DULOXETINE HYDROCHLORIDE [Suspect]
     Active Substance: DULOXETINE HYDROCHLORIDE
     Dosage: 3 DOSAGE FORM, QD
     Route: 065
  223. DULOXETINE HYDROCHLORIDE [Suspect]
     Active Substance: DULOXETINE HYDROCHLORIDE
     Dosage: 1 DOSAGE FORM, QD
     Route: 048
  224. DULOXETINE HYDROCHLORIDE [Suspect]
     Active Substance: DULOXETINE HYDROCHLORIDE
     Dosage: 3 MILLIGRAM
     Route: 048
  225. NORTRIPTYLINE [Suspect]
     Active Substance: NORTRIPTYLINE
     Indication: Product used for unknown indication
     Route: 048
  226. HYDROMORPHONE HYDROCHLORIDE [Suspect]
     Active Substance: HYDROMORPHONE HYDROCHLORIDE
     Indication: Product used for unknown indication
     Dosage: UNK
     Route: 065
  227. ASCORBIC ACID [Suspect]
     Active Substance: ASCORBIC ACID
     Indication: Product used for unknown indication
     Dosage: UNK
     Route: 065
  228. SULFAMETHOXAZOLE [Suspect]
     Active Substance: SULFAMETHOXAZOLE
     Indication: Product used for unknown indication
     Dosage: UNK
     Route: 048
  229. SENNOSIDES [Suspect]
     Active Substance: SENNOSIDES
     Indication: Product used for unknown indication
     Dosage: UNK
     Route: 065
  230. DOCUSATE SODIUM\SENNOSIDES A AND B [Suspect]
     Active Substance: DOCUSATE SODIUM\SENNOSIDES A AND B
     Indication: Product used for unknown indication
     Dosage: UNK
     Route: 065
  231. IMODIUM [Suspect]
     Active Substance: LOPERAMIDE HYDROCHLORIDE
     Indication: Product used for unknown indication
     Route: 048
  232. MOMETASONE FUROATE [Suspect]
     Active Substance: MOMETASONE FUROATE
     Indication: Product used for unknown indication
     Dosage: UNK
     Route: 065
  233. HORSE CHESTNUT [Suspect]
     Active Substance: HORSE CHESTNUT
     Indication: Product used for unknown indication
     Dosage: UNK
     Route: 065
  234. TETANUS IMMUNE GLOBULIN (HUMAN) [Suspect]
     Active Substance: HUMAN CLOSTRIDIUM TETANI TOXOID IMMUNE GLOBULIN
     Indication: Product used for unknown indication
     Dosage: UNK
     Route: 065
  235. NIACINAMIDE [Suspect]
     Active Substance: NIACINAMIDE
     Indication: Product used for unknown indication
     Dosage: UNK
     Route: 065
  236. SULFADIAZINE [Suspect]
     Active Substance: SULFADIAZINE
     Indication: Product used for unknown indication
     Dosage: UNK
     Route: 065
  237. VITAMIN E [Suspect]
     Active Substance: .ALPHA.-TOCOPHEROL
     Indication: Product used for unknown indication
     Dosage: UNK
     Route: 065
  238. ATLANTIC SALMON OIL [Suspect]
     Active Substance: ATLANTIC SALMON OIL
     Indication: Product used for unknown indication
     Dosage: UNK
     Route: 065
  239. ATLANTIC SALMON OIL [Suspect]
     Active Substance: ATLANTIC SALMON OIL
     Dosage: UNK
     Route: 048
  240. LACTOBACILLUS REUTERI [Suspect]
     Active Substance: LACTOBACILLUS REUTERI
     Indication: Product used for unknown indication
     Dosage: UNK
     Route: 065
  241. CYMBALTA [Suspect]
     Active Substance: DULOXETINE HYDROCHLORIDE
     Indication: Product used for unknown indication
     Dosage: 3 MILLILITER, QD
     Route: 048
  242. CYMBALTA [Suspect]
     Active Substance: DULOXETINE HYDROCHLORIDE
     Indication: Pain
  243. PREDNISOLONE [Suspect]
     Active Substance: PREDNISOLONE
     Indication: Product used for unknown indication
     Dosage: UNK
     Route: 065
  244. VITAMIN C [Suspect]
     Active Substance: ASCORBIC ACID
     Indication: Product used for unknown indication
     Dosage: 3 MILLILITER, QD
     Route: 048
  245. SULFAMETHOXAZOLE\TRIMETHOPRIM [Suspect]
     Active Substance: SULFAMETHOXAZOLE\TRIMETHOPRIM
     Indication: Product used for unknown indication
     Dosage: UNK
     Route: 042
  246. BROMHEXINE HYDROCHLORIDE [Suspect]
     Active Substance: BROMHEXINE HYDROCHLORIDE
     Indication: Product used for unknown indication
     Dosage: UNK
     Route: 065
  247. RETINOL [Suspect]
     Active Substance: RETINOL
     Indication: Product used for unknown indication
     Dosage: 600 MILLIEQUIVALENT
     Route: 042
  248. 3-DEHYDRORETINOL [Suspect]
     Active Substance: 3-DEHYDRORETINOL
     Indication: Product used for unknown indication
     Dosage: UNK
     Route: 048
  249. 3-DEHYDRORETINOL [Suspect]
     Active Substance: 3-DEHYDRORETINOL
     Dosage: UNK
     Route: 065
  250. 3-DEHYDRORETINOL [Suspect]
     Active Substance: 3-DEHYDRORETINOL
     Dosage: 1 DOSAGE FORM, QD
     Route: 048
  251. 3-DEHYDRORETINOL [Suspect]
     Active Substance: 3-DEHYDRORETINOL
     Dosage: 600 INTERNATIONAL UNIT
     Route: 065
  252. 3-DEHYDRORETINOL [Suspect]
     Active Substance: 3-DEHYDRORETINOL
     Dosage: 3 MILLIGRAM
     Route: 048
  253. PROBIOTICS NOS [Suspect]
     Active Substance: PROBIOTICS NOS
     Indication: Product used for unknown indication
     Dosage: UNK
     Route: 065
  254. PROBIOTICS NOS [Suspect]
     Active Substance: PROBIOTICS NOS
     Indication: Product used for unknown indication
     Dosage: UNK
     Route: 065
  255. HUMAN IMMUNOGLOBULIN G [Suspect]
     Active Substance: HUMAN IMMUNOGLOBULIN G
     Indication: Product used for unknown indication
     Dosage: UNK
     Route: 042
  256. VITAMIN A [Suspect]
     Active Substance: VITAMIN A
     Indication: Product used for unknown indication
     Dosage: 3 DOSAGE FORM, QD
     Route: 048
  257. VITAMIN A [Suspect]
     Active Substance: VITAMIN A
     Dosage: 1 DOSAGE FORM
     Route: 048
  258. VITAMIN A [Suspect]
     Active Substance: VITAMIN A
     Dosage: UNK
     Route: 048
  259. VITAMIN A [Suspect]
     Active Substance: VITAMIN A
     Dosage: 600 INTERNATIONAL UNIT
     Route: 065
  260. VITAMIN A [Suspect]
     Active Substance: VITAMIN A
     Dosage: UNK
     Route: 065
  261. VITAMIN A [Suspect]
     Active Substance: VITAMIN A
     Dosage: 1 DOSAGE FORM, QD
     Route: 048
  262. VITAMIN A [Suspect]
     Active Substance: VITAMIN A
     Dosage: 3 MILLIGRAM, QD
     Route: 048
  263. CHOLECALCIFEROL [Suspect]
     Active Substance: CHOLECALCIFEROL
     Indication: Product used for unknown indication
     Dosage: UNK
     Route: 065
  264. .ALPHA.-TOCOPHEROL [Suspect]
     Active Substance: .ALPHA.-TOCOPHEROL
     Indication: Product used for unknown indication
     Dosage: UNK
     Route: 065
  265. BIFIDOBACTERIUM LONGUM [Suspect]
     Active Substance: BIFIDOBACTERIUM LONGUM
     Indication: Product used for unknown indication
     Dosage: UNK
     Route: 065
  266. DIETARY SUPPLEMENT\PROBIOTICS [Suspect]
     Active Substance: DIETARY SUPPLEMENT\PROBIOTICS NOS
     Indication: Product used for unknown indication
     Dosage: UNK
     Route: 065
  267. COBAMAMIDE [Suspect]
     Active Substance: COBAMAMIDE
     Indication: Product used for unknown indication
     Dosage: UNK
     Route: 065
  268. POTASSIUM CHLORIDE\SODIUM CHLORIDE [Suspect]
     Active Substance: POTASSIUM CHLORIDE\SODIUM CHLORIDE
     Indication: Product used for unknown indication
     Dosage: UNK
     Route: 042
  269. NASONEX [Suspect]
     Active Substance: MOMETASONE FUROATE
     Indication: Product used for unknown indication
     Dosage: UNK
     Route: 065
  270. RANITIDINE [Concomitant]
     Active Substance: RANITIDINE
     Indication: Product used for unknown indication
     Dosage: UNK
     Route: 065
  271. MAGNESIUM CITRATE [Concomitant]
     Active Substance: MAGNESIUM CITRATE
     Indication: Product used for unknown indication
     Dosage: UNK
     Route: 065

REACTIONS (7)
  - Gastrooesophageal reflux disease [Recovered/Resolved]
  - Pneumonia aspiration [Recovered/Resolved]
  - Coma [Recovered/Resolved]
  - Somnolence [Recovered/Resolved]
  - Underdose [Not Recovered/Not Resolved]
  - Incorrect route of product administration [Recovered/Resolved]
  - Off label use [Recovered/Resolved]
